FAERS Safety Report 7380293-1 (Version None)
Quarter: 2011Q1

REPORT INFORMATION
  Report Type: 
  Country: None (occurrence: None)
  Receive Date: 20110318
  Receipt Date: 20110304
  Transmission Date: 20110831
  Serious: Yes (Hospitalization)
  Sender: FDA-Public Use
  Company Number: 028772

PATIENT
  Age: 83 Year
  Sex: Female

DRUGS (3)
  1. VALPROIC ACID [Concomitant]
  2. LEVETIRACETAM [Suspect]
     Indication: CONVULSION
     Dosage: 1 G QD, 3 G, BID
  3. LACOSAMIDE [Suspect]
     Indication: STATUS EPILEPTICUS
     Dosage: 400 MG BOLUS, 400MG DAILY THEREAFTER, INTRAVENOUS (NOT OTHERWISE SPECIFIED))

REACTIONS (6)
  - COMA [None]
  - STATUS EPILEPTICUS [None]
  - GRAND MAL CONVULSION [None]
  - SUBDURAL HAEMATOMA [None]
  - OFF LABEL USE [None]
  - PARTIAL SEIZURES [None]
